FAERS Safety Report 5025426-7 (Version None)
Quarter: 2006Q2

REPORT INFORMATION
  Report Type: 
  Country: None (occurrence: None)
  Receive Date: 20060608
  Receipt Date: 20060530
  Transmission Date: 20061013
  Serious: Yes (Hospitalization, Other)
  Sender: FDA-Public Use
  Company Number: 2006070313

PATIENT
  Sex: Male
  Weight: 99.7913 kg

DRUGS (2)
  1. CELEBREX [Suspect]
     Indication: ARTHRALGIA
     Dosage: 200 MG (200 MG, 1 IN 1 D), ORAL
     Route: 048
     Dates: end: 20060101
  2. VIAGRA [Suspect]
     Indication: ILL-DEFINED DISORDER
     Dates: end: 20060201

REACTIONS (1)
  - ACUTE RESPIRATORY DISTRESS SYNDROME [None]
